FAERS Safety Report 4702435-6 (Version None)
Quarter: 2005Q2

REPORT INFORMATION
  Report Type: 
  Country: None (occurrence: None)
  Receive Date: 20050629
  Receipt Date: 20050415
  Transmission Date: 20051028
  Serious: Yes (Other)
  Sender: FDA-Public Use
  Company Number: DE-BRISTOL-MYERS SQUIBB COMPANY-12940326

PATIENT
  Age: 82 Year
  Sex: Male
  Weight: 70 kg

DRUGS (5)
  1. PRAVASIN [Suspect]
     Indication: HYPERCHOLESTEROLAEMIA
     Route: 048
     Dates: start: 20040601, end: 20041101
  2. ACETYLSALICYLIC ACID SRT [Concomitant]
  3. CASODEX [Concomitant]
  4. AZUPROSTAT [Concomitant]
  5. DELIX PLUS [Concomitant]

REACTIONS (2)
  - APATHY [None]
  - DEPRESSION [None]
